FAERS Safety Report 19188619 (Version 1)
Quarter: 2021Q2

REPORT INFORMATION
  Report Type: Spontaneous
  Country: US (occurrence: US)
  Receive Date: 20210427
  Receipt Date: 20210427
  Transmission Date: 20210717
  Serious: No
  Sender: FDA-Public Use
  Company Number: US-PRINSTON PHARMACEUTICAL INC.-2019PRN00688

PATIENT
  Sex: Female

DRUGS (6)
  1. CLONAZEPAM. [Suspect]
     Active Substance: CLONAZEPAM
     Indication: STRESS
     Dosage: UNK UNK, AS NEEDED
     Dates: start: 1997
  2. CLONAZEPAM. [Suspect]
     Active Substance: CLONAZEPAM
     Indication: PANIC ATTACK
  3. CLONAZEPAM (TEVA) [Suspect]
     Active Substance: CLONAZEPAM
     Indication: PANIC ATTACK
  4. CLONAZEPAM. [Suspect]
     Active Substance: CLONAZEPAM
     Indication: ANXIETY
  5. CLONAZEPAM (TEVA) [Suspect]
     Active Substance: CLONAZEPAM
     Indication: STRESS
     Dosage: UNK UNK, AS NEEDED
     Dates: start: 1997
  6. CLONAZEPAM (TEVA) [Suspect]
     Active Substance: CLONAZEPAM
     Indication: ANXIETY

REACTIONS (14)
  - Chest pain [Unknown]
  - Hypersensitivity [Unknown]
  - Stress [Unknown]
  - Therapeutic product effect decreased [Unknown]
  - Arthritis [Unknown]
  - Tremor [Unknown]
  - Depression [Unknown]
  - Asthma [Unknown]
  - Gastrointestinal disorder [Unknown]
  - Intentional dose omission [Unknown]
  - Memory impairment [Unknown]
  - Anxiety [Unknown]
  - Fatigue [Unknown]
  - Panic attack [Unknown]
